FAERS Safety Report 24076447 (Version 1)
Quarter: 2024Q3

REPORT INFORMATION
  Report Type: Spontaneous
  Country: PL (occurrence: PL)
  Receive Date: 20240711
  Receipt Date: 20240711
  Transmission Date: 20241017
  Serious: Yes (Other)
  Sender: AMGEN
  Company Number: None

PATIENT
  Age: 71 Year
  Sex: Female
  Weight: 80 kg

DRUGS (5)
  1. ENBREL [Suspect]
     Active Substance: BENZYL ALCOHOL\ETANERCEPT
     Indication: Product used for unknown indication
     Dosage: 500 MG, WEEKLY
     Route: 065
     Dates: start: 201703
  2. VINPOCETINE [Suspect]
     Active Substance: VINPOCETINE
     Indication: Product used for unknown indication
     Dosage: 3 DF
     Route: 065
     Dates: start: 201703
  3. FOLIC ACID [Suspect]
     Active Substance: FOLIC ACID
     Indication: Product used for unknown indication
     Dosage: 15 MG, WEEKLY
     Route: 048
     Dates: start: 201703
  4. BISOPROLOL FUMARATE [Suspect]
     Active Substance: BISOPROLOL FUMARATE
     Indication: Product used for unknown indication
     Dosage: 1 DF, DAILY (FREQ:24 H)
     Route: 065
     Dates: start: 201703
  5. METHOTREXATE SODIUM [Suspect]
     Active Substance: METHOTREXATE SODIUM
     Indication: Product used for unknown indication
     Dosage: 15 MG, WEEKLY
     Route: 058
     Dates: start: 201703

REACTIONS (3)
  - Blood pressure decreased [Recovered/Resolved]
  - Overdose [Unknown]
  - Syncope [Recovered/Resolved]

NARRATIVE: CASE EVENT DATE: 20170301
